FAERS Safety Report 9331994 (Version 3)
Quarter: 2013Q2

REPORT INFORMATION
  Report Type: Spontaneous
  Country: DE (occurrence: None)
  Receive Date: 20130603
  Receipt Date: 20130618
  Transmission Date: 20140414
  Serious: Yes (Other)
  Sender: FDA-Public Use
  Company Number: TPG2013A00605

PATIENT
  Age: 56 Year
  Sex: Female

DRUGS (2)
  1. EDARBI [Suspect]
     Indication: ESSENTIAL HYPERTENSION
     Route: 048
     Dates: start: 20120523, end: 20130122
  2. PRAVASTATIN (PRAVASTATIN) [Concomitant]

REACTIONS (1)
  - Renal failure [None]
